FAERS Safety Report 5135329-5 (Version None)
Quarter: 2006Q4

REPORT INFORMATION
  Report Type: 
  Country: None (occurrence: None)
  Receive Date: 20061024
  Receipt Date: 20061024
  Transmission Date: 20070319
  Serious: Yes (Other)
  Sender: FDA-Public Use
  Company Number: None

PATIENT
  Sex: Male

DRUGS (10)
  1. FORMOTEROL FUMARATE [Suspect]
     Indication: CHRONIC OBSTRUCTIVE PULMONARY DISEASE
     Dosage: 12 MCG Q 12 HR OROPHARINGE
     Route: 049
     Dates: start: 20060809, end: 20060831
  2. MOMETASONE FUROATE [Suspect]
     Indication: CHRONIC OBSTRUCTIVE PULMONARY DISEASE
     Dosage: 220 MCG DAILY OROPHARING
     Dates: start: 20060809, end: 20060831
  3. ALBUTEROL [Concomitant]
  4. ASPIRIN [Concomitant]
  5. FEXOFENADINE [Concomitant]
  6. FLUNISOLIDE NASAL [Concomitant]
  7. LISINOPRIL [Concomitant]
  8. METOPROLOL TARTRATE [Concomitant]
  9. OMEPRAZOLE [Concomitant]
  10. SIMVASTATIN [Concomitant]

REACTIONS (2)
  - ABASIA [None]
  - PAIN [None]
